FAERS Safety Report 7153916-X (Version None)
Quarter: 2010Q4

REPORT INFORMATION
  Report Type: 
  Country: None (occurrence: None)
  Receive Date: 20101213
  Receipt Date: 20101207
  Transmission Date: 20110411
  Serious: Yes (Death, Other)
  Sender: FDA-Public Use
  Company Number: PHHY2010GT83218

PATIENT
  Age: 62 Year
  Sex: Female

DRUGS (1)
  1. EXFORGE [Suspect]
     Indication: HYPERTENSION
     Dosage: 160/5 MG
     Route: 048

REACTIONS (4)
  - CHOLELITHIASIS [None]
  - CHOLELITHOTOMY [None]
  - INTESTINAL PERFORATION [None]
  - PERITONITIS [None]
